FAERS Safety Report 5150774-X (Version None)
Quarter: 2006Q4

REPORT INFORMATION
  Report Type: 
  Country: None (occurrence: None)
  Receive Date: 20061108
  Receipt Date: 20061027
  Transmission Date: 20070319
  Serious: Yes (Life-Threatening, Hospitalization)
  Sender: FDA-Public Use
  Company Number: 2006131250

PATIENT
  Age: 75 Year
  Sex: Male

DRUGS (3)
  1. DOXAZOSIN (DOXAZOSIN) [Suspect]
     Dosage: 4 MG (4 MG, 1 IN 1 D), ORAL
     Route: 048
  2. CARVEDILOL [Suspect]
     Dosage: 50 MG (25 MG, 2 IN 1 D), ORAL
     Route: 048
  3. VERAPAMIL HYDROCHLORIDE [Suspect]
     Indication: CARDIOMYOPATHY
     Dosage: 240 MG (240 MG, 1 IN 1 D), ORAL
     Route: 048
     Dates: end: 20060602

REACTIONS (2)
  - BRADYCARDIA [None]
  - SHOCK [None]
